FAERS Safety Report 8889301 (Version 2)
Quarter: 2012Q4

REPORT INFORMATION
  Report Type: 
  Country: US (occurrence: US)
  Receive Date: 20121106
  Receipt Date: 20121217
  Transmission Date: 20130627
  Serious: Yes (Other)
  Sender: FDA-Public Use
  Company Number: US-PFIZER INC-HQ1702103OCT2000

PATIENT
  Age: 47 Year
  Sex: Female
  Weight: 56 kg

DRUGS (15)
  1. PREMARIN [Suspect]
     Indication: OESTROGEN REPLACEMENT THERAPY
     Dosage: 1.25 mg, 1x/day
     Route: 048
     Dates: start: 1983
  2. PREMARIN [Suspect]
  3. PREMARIN [Suspect]
  4. PREMARIN [Suspect]
  5. PREMARIN [Suspect]
  6. PREMARIN [Suspect]
  7. PREMARIN [Suspect]
  8. PREMARIN [Suspect]
  9. PREMARIN [Suspect]
     Dosage: 1.25 mg, UNK
     Route: 048
  10. PREMARIN [Suspect]
     Dosage: UNK
  11. ADDERALL [Suspect]
     Indication: ATTENTION DEFICIT/HYPERACTIVITY DISORDER
     Dosage: intermittent use
     Route: 065
     Dates: start: 2000, end: 20010210
  12. SYNTHROID [Concomitant]
     Indication: HYPOTHYROIDISM
     Dosage: 100 ug, 1x/day
     Route: 065
     Dates: start: 1983
  13. WELLBUTRIN XL [Concomitant]
  14. CLONOPIN [Concomitant]
  15. ATIVAN [Concomitant]

REACTIONS (36)
  - Haemorrhage [Not Recovered/Not Resolved]
  - Psychotic disorder [Unknown]
  - Neurological symptom [Unknown]
  - Chest pain [Unknown]
  - Drug effect decreased [Not Recovered/Not Resolved]
  - Nausea [Unknown]
  - Disturbance in attention [Recovered/Resolved]
  - Oral mucosal discolouration [Unknown]
  - Tongue disorder [Unknown]
  - Hot flush [Not Recovered/Not Resolved]
  - Vulvovaginal dryness [Unknown]
  - Vulvovaginal discomfort [Recovered/Resolved]
  - Dry skin [Recovered/Resolved]
  - Arthropathy [Unknown]
  - Sleep disorder [Not Recovered/Not Resolved]
  - Pain in extremity [Unknown]
  - Visual impairment [Unknown]
  - Cold sweat [Unknown]
  - Hair texture abnormal [Unknown]
  - Alopecia [Unknown]
  - Dyspepsia [Unknown]
  - Rash [Not Recovered/Not Resolved]
  - Muscle spasms [Not Recovered/Not Resolved]
  - Weight decreased [Unknown]
  - Skin atrophy [Unknown]
  - Personality change [Not Recovered/Not Resolved]
  - Feeling abnormal [Not Recovered/Not Resolved]
  - Contusion [Not Recovered/Not Resolved]
  - Fatigue [Unknown]
  - Hyperhidrosis [Not Recovered/Not Resolved]
  - Diarrhoea [Not Recovered/Not Resolved]
  - Throat tightness [Not Recovered/Not Resolved]
  - Sinus congestion [Not Recovered/Not Resolved]
  - Urinary incontinence [Not Recovered/Not Resolved]
  - Product quality issue [Not Recovered/Not Resolved]
  - Abdominal distension [Not Recovered/Not Resolved]
